FAERS Safety Report 8429561-2 (Version None)
Quarter: 2012Q2

REPORT INFORMATION
  Report Type: 
  Country: None (occurrence: None)
  Receive Date: 20120612
  Receipt Date: 20120604
  Transmission Date: 20120825
  Serious: Yes (Death, Other)
  Sender: FDA-Public Use
  Company Number: FR-UCBSA-051752

PATIENT
  Age: 58 Year
  Sex: Male
  Weight: 72 kg

DRUGS (2)
  1. KEPPRA [Suspect]
     Indication: EPILEPSY
     Route: 048
     Dates: start: 20100809
  2. DEPAKENE [Concomitant]
     Dates: end: 20100101

REACTIONS (4)
  - LIVER DISORDER [None]
  - COMPLETED SUICIDE [None]
  - COGNITIVE DISORDER [None]
  - VISUAL FIELD DEFECT [None]
